FAERS Safety Report 10053206 (Version 1)
Quarter: 2014Q2

REPORT INFORMATION
  Report Type: Spontaneous
  Country: US (occurrence: US)
  Receive Date: 20140402
  Receipt Date: 20140402
  Transmission Date: 20141212
  Serious: Yes (Other)
  Sender: FDA-Public Use
  Company Number: US-GLAXOSMITHKLINE-A1067541A

PATIENT
  Age: 55 Year
  Sex: Male

DRUGS (3)
  1. ADVAIR [Suspect]
     Indication: SEASONAL ALLERGY
     Dosage: 1PUFF TWICE PER DAY
     Route: 055
  2. ALBUTEROL [Suspect]
     Indication: SEASONAL ALLERGY
     Route: 055
  3. MEDROL [Concomitant]

REACTIONS (13)
  - Pulmonary congestion [Not Recovered/Not Resolved]
  - Pain [Not Recovered/Not Resolved]
  - Feeling abnormal [Not Recovered/Not Resolved]
  - Dyspnoea [Not Recovered/Not Resolved]
  - Lacrimation increased [Not Recovered/Not Resolved]
  - Throat irritation [Not Recovered/Not Resolved]
  - Nausea [Not Recovered/Not Resolved]
  - Sleep disorder [Not Recovered/Not Resolved]
  - Influenza like illness [Not Recovered/Not Resolved]
  - Lung disorder [Not Recovered/Not Resolved]
  - Cough [Not Recovered/Not Resolved]
  - Dysgeusia [Not Recovered/Not Resolved]
  - Movement disorder [Not Recovered/Not Resolved]
